FAERS Safety Report 4476751-X (Version None)
Quarter: 2004Q4

REPORT INFORMATION
  Report Type: 
  Country: None (occurrence: None)
  Receive Date: 20041015
  Receipt Date: 20041015
  Transmission Date: 20050328
  Serious: Yes (Death, Life-Threatening, Hospitalization)
  Sender: FDA-Public Use
  Company Number: None

PATIENT
  Sex: Female
  Weight: 43.5453 kg

DRUGS (1)
  1. RIMADYL [Suspect]
     Indication: ARTHRITIS
     Dosage: 1 TABLET   TWICE A DAY ORAL
     Route: 048
     Dates: start: 20040413, end: 20040420

REACTIONS (1)
  - COMA [None]
